FAERS Safety Report 24684472 (Version 1)
Quarter: 2024Q4

REPORT INFORMATION
  Report Type: Report from Study
  Country: CN (occurrence: CN)
  Receive Date: 20241202
  Receipt Date: 20241202
  Transmission Date: 20250115
  Serious: Yes (Other)
  Sender: GILEAD
  Company Number: CN-GILEAD-2024-0695303

PATIENT
  Age: 35 Year
  Sex: Female

DRUGS (3)
  1. SACITUZUMAB GOVITECAN-HZIY [Suspect]
     Active Substance: SACITUZUMAB GOVITECAN-HZIY
     Indication: Breast cancer
     Dosage: N 540MG DAY1, DAY 8 ONCE EVERY THREE WEEKS
     Route: 041
     Dates: start: 20241112
  2. SINTILIMAB [Concomitant]
     Active Substance: SINTILIMAB
     Indication: Breast cancer
     Dosage: 200 MG
     Route: 042
     Dates: start: 20241112, end: 20241122
  3. BEVACIZUMAB [Concomitant]
     Active Substance: BEVACIZUMAB
     Indication: Breast cancer
     Dosage: 400 MG
     Route: 065

REACTIONS (4)
  - Hepatic failure [Recovering/Resolving]
  - Myelosuppression [Recovering/Resolving]
  - Pain [Recovering/Resolving]
  - Anaemia [Recovering/Resolving]
